FAERS Safety Report 8115561-9 (Version None)
Quarter: 2012Q1

REPORT INFORMATION
  Report Type: 
  Country: None (occurrence: None)
  Receive Date: 20120206
  Receipt Date: 20120131
  Transmission Date: 20120608
  Serious: Yes (Disabling)
  Sender: FDA-Public Use
  Company Number: US-SANOFI-AVENTIS-2012SA004685

PATIENT
  Age: 53 Year
  Sex: Female

DRUGS (3)
  1. FEXOFENADINE HYDROCHLORIDE/PSEUDOEPHEDRINE HYDROCHLORIDE [Suspect]
     Dates: start: 20040101, end: 20110101
  2. ALLEGRA-D 12 HOUR [Suspect]
     Dates: start: 19770101, end: 20040101
  3. ALLEGRA-D 12 HOUR [Suspect]
     Dates: start: 20110101

REACTIONS (3)
  - DIABETES MELLITUS [None]
  - THALAMUS HAEMORRHAGE [None]
  - HYPERTENSION [None]
